FAERS Safety Report 4720865-3 (Version None)
Quarter: 2005Q3

REPORT INFORMATION
  Report Type: 
  Country: None (occurrence: None)
  Receive Date: 20050720
  Receipt Date: 20050708
  Transmission Date: 20060218
  Serious: Yes (Life-Threatening)
  Sender: FDA-Public Use
  Company Number: 2005098840

PATIENT
  Age: 67 Year
  Sex: Female
  Weight: 55 kg

DRUGS (2)
  1. ARTHROTEC [Suspect]
     Indication: BACK PAIN
     Dosage: 3 IN 1 D, ORAL
     Route: 048
     Dates: start: 20050520, end: 20050529
  2. ACETAMINOPHEN AND TRAMADOL HCL [Suspect]
     Indication: BACK PAIN
     Dosage: 3 IN 1 D, ORAL
     Route: 048
     Dates: start: 20050520, end: 20050529

REACTIONS (10)
  - BURNING SENSATION [None]
  - CONVULSION [None]
  - DYSKINESIA [None]
  - FALL [None]
  - FORMICATION [None]
  - HOT FLUSH [None]
  - MALAISE [None]
  - SYNCOPE [None]
  - URTICARIA [None]
  - VOMITING [None]
